FAERS Safety Report 21700238 (Version 4)
Quarter: 2024Q4

REPORT INFORMATION
  Report Type: Spontaneous
  Country: DE (occurrence: DE)
  Receive Date: 20221208
  Receipt Date: 20241115
  Transmission Date: 20250115
  Serious: Yes (Other)
  Sender: SANOFI AVENTIS
  Company Number: DE-BoehringerIngelheim-2022-BI-203673

PATIENT
  Age: 71 Year
  Sex: Male
  Weight: 120 kg

DRUGS (13)
  1. TAMSULOSIN HYDROCHLORIDE [Suspect]
     Active Substance: TAMSULOSIN HYDROCHLORIDE
     Indication: Product used for unknown indication
     Dosage: 0.4 MG, QD
     Route: 065
  2. TELMISARTAN [Suspect]
     Active Substance: TELMISARTAN
     Indication: Hypertension
     Dosage: 80 MG, QD
     Route: 065
  3. TELMISARTAN [Suspect]
     Active Substance: TELMISARTAN
     Dosage: 40 MG, BID  (0.5 -0-0.5 A HALF TABLET IN THE MORNING AND A HALF TABLET IN THE EVENING)
     Route: 065
  4. CARVEDILOL [Suspect]
     Active Substance: CARVEDILOL
     Indication: Hypertension
     Dosage: UNK UNK, BID  (0.5 -0-0.5 HALF TABLET IN THE MORNING AND A HALF TABLET IN THE EVENING)
     Route: 065
  5. APIXABAN [Suspect]
     Active Substance: APIXABAN
     Indication: Embolism
     Dosage: 5 MG, QD (0-1-0)
     Route: 065
  6. CHOLECALCIFEROL [Suspect]
     Active Substance: CHOLECALCIFEROL
     Indication: Product used for unknown indication
     Dosage: 20000 IU, QW
     Route: 065
  7. OLANZAPINE [Suspect]
     Active Substance: OLANZAPINE
     Indication: Sleep disorder
     Dosage: 5 MG, QD
     Route: 065
  8. ASCORBIC ACID [Suspect]
     Active Substance: ASCORBIC ACID
     Indication: Product used for unknown indication
     Dosage: 1000 MG, QD
     Route: 065
  9. ATORVASTATIN [Suspect]
     Active Substance: ATORVASTATIN
     Indication: Product used for unknown indication
     Dosage: 20 MG, QD
     Route: 065
  10. MOXONIDINE [Suspect]
     Active Substance: MOXONIDINE
     Indication: Hypertension
     Dosage: 0.2 MG, QD
     Route: 065
  11. CHLORTHALIDONE [Suspect]
     Active Substance: CHLORTHALIDONE
     Indication: Product used for unknown indication
     Dosage: 25 MG, QD
     Route: 065
  12. NITRENDIPINE [Suspect]
     Active Substance: NITRENDIPINE
     Indication: Hypertension
     Dosage: AS NECESSARY (BLOOD PRESSURE OVER 170 MMHG)
     Route: 065
  13. ARGININE\FOLIC ACID [Suspect]
     Active Substance: ARGININE\FOLIC ACID
     Indication: Product used for unknown indication
     Dosage: UNK UNK, ONCE DAILY
     Route: 065

REACTIONS (3)
  - Hemihypoaesthesia [Not Recovered/Not Resolved]
  - Hemiparaesthesia [Not Recovered/Not Resolved]
  - Wrong technique in product usage process [Unknown]
